FAERS Safety Report 6556202-1 (Version None)
Quarter: 2010Q1

REPORT INFORMATION
  Report Type: 
  Country: None (occurrence: None)
  Receive Date: 20100128
  Receipt Date: 20090821
  Transmission Date: 20100710
  Serious: Yes (Other)
  Sender: FDA-Public Use
  Company Number: US-TEVA-201943USA

PATIENT
  Sex: Female

DRUGS (4)
  1. COPAXONE [Suspect]
     Indication: MULTIPLE SCLEROSIS
     Route: 058
     Dates: end: 20090301
  2. BENAZEPRIL HYDROCHLORIDE [Concomitant]
  3. ANOVLAR [Concomitant]
  4. OXYBUTYNIN [Concomitant]

REACTIONS (7)
  - ABDOMINAL PAIN [None]
  - CELLULITIS [None]
  - INJECTION SITE INJURY [None]
  - INJECTION SITE NECROSIS [None]
  - INJECTION SITE REACTION [None]
  - INJECTION SITE SCAR [None]
  - SWELLING [None]
